FAERS Safety Report 16476370 (Version 2)
Quarter: 2019Q2

REPORT INFORMATION
  Report Type: Spontaneous
  Country: US (occurrence: US)
  Receive Date: 20190626
  Receipt Date: 20190627
  Transmission Date: 20190711
  Serious: No
  Sender: FDA-Public Use
  Company Number: US-009507513-1906USA009269

PATIENT
  Age: 63 Year
  Sex: Female

DRUGS (2)
  1. INTRON A [Suspect]
     Active Substance: INTERFERON ALFA-2B
     Dosage: 2 MILLION INTERNATIONAL UNIT (STRENGTH: 18 MIU), TWICE WEEKLY
  2. INTRON A [Suspect]
     Active Substance: INTERFERON ALFA-2B
     Indication: POLYCYTHAEMIA VERA
     Dosage: 0.75-1 MIU (MILLION INTERNATIONAL UNIT) (STRENGTH: 18 MIU), TWICE A WEEK
     Dates: start: 200006

REACTIONS (3)
  - Influenza like illness [Not Recovered/Not Resolved]
  - Red blood cell count increased [Recovering/Resolving]
  - Platelet count increased [Recovering/Resolving]

NARRATIVE: CASE EVENT DATE: 201812
